FAERS Safety Report 7556880-4 (Version None)
Quarter: 2011Q2

REPORT INFORMATION
  Report Type: 
  Country: None (occurrence: None)
  Receive Date: 20110620
  Receipt Date: 20110602
  Transmission Date: 20111010
  Serious: No
  Sender: FDA-Public Use
  Company Number: US-B.I. PHARMACEUTICALS,INC./RIDGEFIELD-2011-BP-09200BP

PATIENT
  Sex: Female
  Weight: 78.47 kg

DRUGS (9)
  1. PRADAXA [Suspect]
     Indication: ATRIAL FIBRILLATION
  2. TRAMADOL HCL [Concomitant]
  3. OMEPRAZOLE [Concomitant]
  4. CLONIDINE HCL [Concomitant]
  5. SOTALOL HCL [Concomitant]
  6. PRADAXA [Suspect]
     Indication: ANTICOAGULANT THERAPY
     Dosage: 300 MG
     Route: 048
  7. ISOSORBIDE MONONIT [Concomitant]
  8. NITROLINGUAL [Concomitant]
  9. AMLODIPINE [Concomitant]

REACTIONS (1)
  - FLATULENCE [None]
